FAERS Safety Report 10400140 (Version 3)
Quarter: 2014Q3

REPORT INFORMATION
  Report Type: Spontaneous
  Country: TH (occurrence: TH)
  Receive Date: 20140821
  Receipt Date: 20140922
  Transmission Date: 20150326
  Serious: Yes (Death, Hospitalization)
  Sender: FDA-Public Use
  Company Number: TH-PFIZER INC-2014229581

PATIENT
  Sex: Male

DRUGS (1)
  1. SUTENT [Suspect]
     Active Substance: SUNITINIB MALATE
     Indication: RENAL CELL CARCINOMA
     Dosage: 37.5 MG, DAILY (3 CAPSULES HARD OF 12.5 MG, ONCE DAILY)
     Route: 048
     Dates: start: 2014, end: 201408

REACTIONS (8)
  - Renal cell carcinoma [Fatal]
  - Oral pain [Not Recovered/Not Resolved]
  - Neck pain [Not Recovered/Not Resolved]
  - Disease progression [Fatal]
  - Pyrexia [Not Recovered/Not Resolved]
  - Pleural effusion [Fatal]
  - Platelet count decreased [Not Recovered/Not Resolved]
  - Gingivitis [Not Recovered/Not Resolved]

NARRATIVE: CASE EVENT DATE: 2014
